FAERS Safety Report 7603297-X (Version None)
Quarter: 2011Q3

REPORT INFORMATION
  Report Type: 
  Country: None (occurrence: None)
  Receive Date: 20110712
  Receipt Date: 20110628
  Transmission Date: 20111222
  Serious: Yes (Death, Other)
  Sender: FDA-Public Use
  Company Number: PHHY2011JP59288

PATIENT
  Sex: Male
  Weight: 63 kg

DRUGS (17)
  1. EXJADE [Suspect]
     Indication: IRON OVERLOAD
     Dosage: 1250 MG, UNK
     Route: 048
     Dates: start: 20081003, end: 20090306
  2. PRIMOBOLAN-DEPOT INJ [Concomitant]
     Dosage: 20 MG, UNK
     Route: 048
     Dates: end: 20091003
  3. ALLOPURINOL [Concomitant]
     Dosage: 200 MG, UNK
     Route: 048
     Dates: start: 20081003, end: 20090403
  4. PREDNISOLONE [Concomitant]
     Dosage: 10 MG, UNK
     Route: 048
     Dates: start: 20081003
  5. PREDNISOLONE [Concomitant]
     Dosage: 7.5 MG, UNK
     Route: 048
     Dates: end: 20091003
  6. MUCOSOLVAN [Concomitant]
     Dosage: 45 MG, UNK
     Route: 048
     Dates: start: 20081003, end: 20091003
  7. BACTRIM [Concomitant]
     Dosage: 1 DF, UNK
     Route: 048
     Dates: start: 20090529, end: 20091003
  8. PRIMOBOLAN-DEPOT INJ [Concomitant]
     Indication: MYELODYSPLASTIC SYNDROME
     Dosage: 20 MG, UNK
     Route: 048
     Dates: start: 20081003
  9. RED BLOOD CELLS, CONCENTRATED [Concomitant]
     Dosage: 2 U, EVERY 4 WEEKS
     Dates: start: 20090417, end: 20090612
  10. ITRACONAZOLE [Concomitant]
     Dosage: 200 MG, UNK
     Route: 048
     Dates: start: 20081003
  11. MEDICON [Concomitant]
     Dosage: 45 MG, UNK
     Route: 048
     Dates: start: 20081003, end: 20090403
  12. EXJADE [Suspect]
     Dosage: 1250 MG, UNK
     Route: 048
     Dates: start: 20090529, end: 20090903
  13. ITRACONAZOLE [Concomitant]
     Dosage: 200 MG, UNK
     Route: 048
     Dates: end: 20091003
  14. SULFAMETHOXAZOLE [Concomitant]
     Dosage: 1 DF, UNK
     Route: 048
     Dates: start: 20081003, end: 20090403
  15. DESFERAL [Concomitant]
     Indication: IRON OVERLOAD
     Dosage: 500 MG, UNK
     Route: 030
     Dates: start: 20070615, end: 20080808
  16. LANSOPRAZOLE [Concomitant]
     Dosage: 30 MG, UNK
     Route: 048
     Dates: start: 20081003, end: 20091003
  17. ALENDRONATE SODIUM [Concomitant]
     Dosage: 35 MG, UNK
     Dates: start: 20080206, end: 20091003

REACTIONS (5)
  - MESENTERIC OCCLUSION [None]
  - HEPATIC FUNCTION ABNORMAL [None]
  - HEPATIC STEATOSIS [None]
  - CHOLELITHIASIS [None]
  - BILE DUCT STONE [None]
